FAERS Safety Report 17883047 (Version 1)
Quarter: 2020Q2

REPORT INFORMATION
  Report Type: Spontaneous
  Country: ES (occurrence: ES)
  Receive Date: 20200611
  Receipt Date: 20200611
  Transmission Date: 20200714
  Serious: Yes (Death, Other)
  Sender: FDA-Public Use
  Company Number: ES-ABBVIE-20K-144-3439464-00

PATIENT
  Age: 57 Year
  Sex: Male

DRUGS (10)
  1. ENOXAPARINA SODICA [Concomitant]
     Active Substance: ENOXAPARIN SODIUM
     Indication: THROMBOSIS PROPHYLAXIS
     Route: 058
     Dates: start: 20200315, end: 20200326
  2. INTERFERON BETA-1B [Concomitant]
     Active Substance: INTERFERON BETA-1B
     Indication: COVID-19 PNEUMONIA
     Route: 058
     Dates: start: 20200315, end: 20200323
  3. RESOCHIN [Interacting]
     Active Substance: NIFEDIPINE
     Indication: COVID-19 PNEUMONIA
     Dosage: 155 MG
     Route: 048
     Dates: start: 20200315, end: 20200317
  4. TAMIFLU [Concomitant]
     Active Substance: OSELTAMIVIR PHOSPHATE
     Indication: COVID-19 PNEUMONIA
     Route: 048
     Dates: start: 20200315, end: 20200318
  5. OMEPRAZOL [Concomitant]
     Active Substance: OMEPRAZOLE
     Indication: PROPHYLAXIS AGAINST GASTROINTESTINAL ULCER
     Dosage: (2141A)
     Route: 042
     Dates: start: 20200317, end: 20200325
  6. IPRATROPIO BROMURO [Concomitant]
     Active Substance: IPRATROPIUM BROMIDE
     Indication: BRONCHOSPASM
     Dosage: (1067BR)
     Route: 055
     Dates: start: 20200315, end: 20200318
  7. CEFTRIAXONA [Concomitant]
     Active Substance: CEFTRIAXONE
     Indication: COVID-19 PNEUMONIA
     Dosage: (501A)
     Route: 042
     Dates: start: 20200315, end: 20200320
  8. KALETRA [Suspect]
     Active Substance: LOPINAVIR\RITONAVIR
     Indication: COVID-19 PNEUMONIA
     Route: 048
     Dates: start: 20200315, end: 20200324
  9. INSULINA ISOFANA HUMANA PRB [Concomitant]
     Indication: HYPERGLYCAEMIA
     Dosage: (1741JD)
     Route: 058
     Dates: start: 20200315, end: 20200323
  10. AZITROMICINA [Interacting]
     Active Substance: AZITHROMYCIN DIHYDRATE
     Indication: COVID-19 PNEUMONIA
     Route: 042
     Dates: start: 20200316, end: 20200318

REACTIONS (2)
  - Long QT syndrome [Unknown]
  - Respiratory failure [Fatal]

NARRATIVE: CASE EVENT DATE: 2020
